FAERS Safety Report 4302542-6 (Version None)
Quarter: 2004Q1

REPORT INFORMATION
  Report Type: 
  Country: None (occurrence: None)
  Receive Date: 20040217
  Receipt Date: 20030401
  Transmission Date: 20041129
  Serious: Yes (Other)
  Sender: FDA-Public Use
  Company Number: 2003145971US

PATIENT
  Sex: Male
  Weight: 3.9 kg

DRUGS (3)
  1. CYTOTEC [Suspect]
     Indication: INDUCED LABOUR
     Dosage: 0.5 DF AND .5 OR 1 DF, VAGINAL
     Route: 067
     Dates: start: 20010308, end: 20010308
  2. NUBAIN [Concomitant]
  3. PROMETHAZINE [Concomitant]

REACTIONS (2)
  - FOETAL DISTRESS SYNDROME [None]
  - GASTROOESOPHAGEAL REFLUX DISEASE [None]
